FAERS Safety Report 9057003 (Version 1)
Quarter: 2013Q1

REPORT INFORMATION
  Report Type: Spontaneous
  Country: PR (occurrence: PR)
  Receive Date: 20130131
  Receipt Date: 20130131
  Transmission Date: 20140127
  Serious: No
  Sender: FDA-Public Use
  Company Number: PR-ABBOTT-12P-131-0931080-00

PATIENT
  Sex: Female

DRUGS (1)
  1. HUMIRA [Suspect]
     Indication: PRODUCT USED FOR UNKNOWN INDICATION
     Route: 058

REACTIONS (10)
  - Inflammation [Unknown]
  - Genital infection fungal [Unknown]
  - Fungal infection [Unknown]
  - Musculoskeletal stiffness [Unknown]
  - Inflammation [Unknown]
  - Liver disorder [Unknown]
  - Drug dose omission [Unknown]
  - Joint swelling [Unknown]
  - Arthralgia [Unknown]
  - Bone pain [Unknown]
